FAERS Safety Report 5223119-4 (Version None)
Quarter: 2007Q1

REPORT INFORMATION
  Report Type: 
  Country: None (occurrence: None)
  Receive Date: 20061201
  Receipt Date: 20060724
  Transmission Date: 20070707
  Serious: No
  Sender: FDA-Public Use
  Company Number: 2006PV018175

PATIENT
  Age: 75 Year
  Sex: Female
  Weight: 86.1834 kg

DRUGS (5)
  1. BYETTA [Suspect]
     Indication: DIABETES MELLITUS NON-INSULIN-DEPENDENT
     Dosage: 5 MCG BID SC
     Route: 058
     Dates: start: 20060711
  2. DETROL LA [Suspect]
     Indication: URGE INCONTINENCE
     Dosage: 4 MG QD PO
     Route: 048
     Dates: start: 20060720
  3. METFORMIN HCL [Concomitant]
  4. LANTUS [Concomitant]
  5. AMARYL [Concomitant]

REACTIONS (2)
  - DRY MOUTH [None]
  - NAUSEA [None]
